FAERS Safety Report 6448766-3 (Version None)
Quarter: 2009Q4

REPORT INFORMATION
  Report Type: 
  Country: None (occurrence: None)
  Receive Date: 20091120
  Receipt Date: 20090924
  Transmission Date: 20100525
  Serious: No
  Sender: FDA-Public Use
  Company Number: US-KINGPHARMUSA00001-K200901182

PATIENT
  Sex: Female
  Weight: 52.154 kg

DRUGS (3)
  1. FLECTOR [Suspect]
     Indication: INFLAMMATION
     Dosage: 1 PATCH, SINGLE
     Route: 061
     Dates: start: 20090801, end: 20090801
  2. SINGULAIR [Concomitant]
     Indication: ASTHMA
     Dosage: UNK
  3. ADVAIR DISKUS 100/50 [Concomitant]
     Indication: ASTHMA
     Dosage: UNK

REACTIONS (3)
  - ASTHMA [None]
  - COUGH [None]
  - RHINORRHOEA [None]
